FAERS Safety Report 21102938 (Version 2)
Quarter: 2022Q3

REPORT INFORMATION
  Report Type: Spontaneous
  Country: US (occurrence: US)
  Receive Date: 20220720
  Receipt Date: 20220721
  Transmission Date: 20221027
  Serious: No
  Sender: FDA-Public Use
  Company Number: US-UNITED THERAPEUTICS-UNT-2022-015193

PATIENT
  Sex: Male
  Weight: 82.313 kg

DRUGS (2)
  1. REMODULIN [Suspect]
     Active Substance: TREPROSTINIL
     Indication: Pulmonary arterial hypertension
     Dosage: UNK, CONTINUING
     Route: 058
     Dates: start: 20220506
  2. REMODULIN [Suspect]
     Active Substance: TREPROSTINIL
     Dosage: 0.028 ?G/KG (PREFILLED WITH 3ML PER CASSETTE; PUMP RATE 29MCL/HOUR), CONTINUING
     Route: 058
     Dates: start: 2022

REACTIONS (4)
  - Device use error [Unknown]
  - Incorrect drug administration rate [Unknown]
  - Device infusion issue [Unknown]
  - Device infusion issue [Unknown]

NARRATIVE: CASE EVENT DATE: 20220101
